FAERS Safety Report 8815590 (Version 2)
Quarter: 2012Q4

REPORT INFORMATION
  Report Type: 
  Country: US (occurrence: US)
  Receive Date: 20120928
  Receipt Date: 20121126
  Transmission Date: 20130627
  Serious: Yes (Hospitalization)
  Sender: FDA-Public Use
  Company Number: US-ELI_LILLY_AND_COMPANY-US201209005348

PATIENT
  Sex: Female

DRUGS (4)
  1. HUMALOG 25% LISPRO, 75% NPL [Suspect]
     Indication: TYPE 2 DIABETES MELLITUS
     Dosage: 30 u, each morning
     Dates: start: 201201
  2. HUMALOG 25% LISPRO, 75% NPL [Suspect]
     Dosage: 80 u, each evening
     Dates: start: 201201
  3. HUMALOG 25% LISPRO, 75% NPL [Suspect]
     Dosage: 30 u, bid
  4. NEURONTIN [Concomitant]

REACTIONS (3)
  - Diabetic coma [Recovered/Resolved]
  - Blood glucose increased [Recovered/Resolved]
  - Blood glucose abnormal [Recovering/Resolving]
